FAERS Safety Report 23662246 (Version 2)
Quarter: 2024Q1

REPORT INFORMATION
  Report Type: Spontaneous
  Country: US (occurrence: US)
  Receive Date: 20240322
  Receipt Date: 20240326
  Transmission Date: 20240410
  Serious: Yes (Hospitalization, Other)
  Sender: FDA-Public Use
  Company Number: US-GLENMARK PHARMACEUTICALS-2024GMK089488

PATIENT

DRUGS (10)
  1. GABAPENTIN [Suspect]
     Active Substance: GABAPENTIN
     Indication: Alcohol use disorder
     Dosage: 600 MILLIGRAM, TID
     Route: 030
     Dates: start: 2018
  2. ACAMPROSATE [Suspect]
     Active Substance: ACAMPROSATE
     Indication: Alcohol use disorder
     Dosage: 666 MILLIGRAM, TID
     Route: 065
     Dates: start: 2016
  3. DISULFIRAM [Concomitant]
     Active Substance: DISULFIRAM
     Indication: Alcohol use disorder
     Dosage: 250 MILLIGRAM, QD
     Route: 030
     Dates: start: 2021
  4. NALTREXONE [Concomitant]
     Active Substance: NALTREXONE
     Indication: Alcohol use disorder
     Dosage: 50 MILLIGRAM, QD
     Route: 048
     Dates: start: 2016
  5. NALTREXONE [Concomitant]
     Active Substance: NALTREXONE
     Dosage: 380 MILLIGRAM, MONTHLY
     Route: 030
     Dates: start: 2019
  6. SERTRALINE [Concomitant]
     Active Substance: SERTRALINE HYDROCHLORIDE
     Indication: Mental disorder
     Dosage: 150 MILLIGRAM, QD
     Route: 065
  7. BUPROPION [Concomitant]
     Active Substance: BUPROPION
     Indication: Mental disorder
     Dosage: 300 MILLIGRAM, QD
     Route: 065
  8. RISPERIDONE [Concomitant]
     Active Substance: RISPERIDONE
     Indication: Mental disorder
     Dosage: 0.5 MILLIGRAM, QD
     Route: 065
  9. RISPERIDONE [Concomitant]
     Active Substance: RISPERIDONE
     Dosage: 2 MILLIGRAM, QD (NIGHTLY)
     Route: 065
  10. VENLAFAXINE [Concomitant]
     Active Substance: VENLAFAXINE HYDROCHLORIDE
     Indication: Product used for unknown indication
     Dosage: 225 MILLIGRAM, QD
     Route: 065

REACTIONS (8)
  - Glomerular filtration rate decreased [Unknown]
  - Gastritis [Unknown]
  - Oesophagitis [Unknown]
  - Fatigue [Unknown]
  - Off label use [Unknown]
  - Product dose omission in error [Unknown]
  - Intentional product misuse [Unknown]
  - Drug ineffective [Unknown]
